FAERS Safety Report 6380943-2 (Version None)
Quarter: 2009Q3

REPORT INFORMATION
  Report Type: 
  Country: None (occurrence: None)
  Receive Date: 20090925
  Receipt Date: 20090925
  Transmission Date: 20100115
  Serious: No
  Sender: FDA-Public Use
  Company Number: None

PATIENT
  Sex: Female
  Weight: 85.5 kg

DRUGS (1)
  1. ZOMETA [Suspect]
     Dosage: 4 MG
     Dates: end: 20090727

REACTIONS (6)
  - BONE DISORDER [None]
  - DYSGEUSIA [None]
  - EAR PAIN [None]
  - GINGIVAL ULCERATION [None]
  - HEADACHE [None]
  - PAIN IN JAW [None]
